FAERS Safety Report 5139527-6 (Version None)
Quarter: 2006Q4

REPORT INFORMATION
  Report Type: 
  Country: None (occurrence: None)
  Receive Date: 20061024
  Receipt Date: 20061011
  Transmission Date: 20070319
  Serious: Yes (Death, Life-Threatening, Hospitalization)
  Sender: FDA-Public Use
  Company Number: 2006124937

PATIENT
  Age: 45 Year
  Sex: Male
  Weight: 58 kg

DRUGS (6)
  1. SUTENT [Suspect]
     Indication: RENAL CELL CARCINOMA STAGE UNSPECIFIED
     Dosage: 50 MG (50 MG,  1 IN 1 D), ORAL
     Route: 048
     Dates: start: 20060825
  2. ACETAMINOPHEN [Concomitant]
  3. CODEINE LINCTUS (CHLOROFORM WATER, CONCENTRATED, CODEINE PHOSPHATE, OX [Concomitant]
  4. MYLANTA [Concomitant]
  5. LOSEC (OMEPRAZOLE) [Concomitant]
  6. MORPHINE [Concomitant]

REACTIONS (3)
  - DEHYDRATION [None]
  - HAEMOTHORAX [None]
  - PAIN [None]
